FAERS Safety Report 6681579-6 (Version None)
Quarter: 2010Q2

REPORT INFORMATION
  Report Type: 
  Country: None (occurrence: None)
  Receive Date: 20100413
  Receipt Date: 20100413
  Transmission Date: 20101027
  Serious: Yes (Other)
  Sender: FDA-Public Use
  Company Number: None

PATIENT
  Age: 49 Year
  Sex: Female
  Weight: 90.7194 kg

DRUGS (1)
  1. ZOMETA [Suspect]
     Indication: OSTEOPENIA
     Dosage: ONCE EVERY 6 MONTH IV DRIP
     Route: 041
     Dates: start: 20090604, end: 20090604

REACTIONS (2)
  - ARTHRALGIA [None]
  - BONE PAIN [None]
